FAERS Safety Report 8180315-4 (Version None)
Quarter: 2012Q1

REPORT INFORMATION
  Report Type: 
  Country: None (occurrence: None)
  Receive Date: 20120302
  Receipt Date: 20120227
  Transmission Date: 20120608
  Serious: Yes (Death)
  Sender: FDA-Public Use
  Company Number: PT-PFIZER INC-2012051098

PATIENT
  Age: 43 Year
  Sex: Female

DRUGS (1)
  1. FLUCONAZOLE [Suspect]
     Indication: ZYGOMYCOSIS

REACTIONS (1)
  - MULTI-ORGAN DISORDER [None]
